FAERS Safety Report 8720522 (Version 2)
Quarter: 2015Q3

REPORT INFORMATION
  Report Type: Report from Study
  Country: US (occurrence: US)
  Receive Date: 20120813
  Receipt Date: 20150713
  Transmission Date: 20151125
  Serious: Yes (Other)
  Sender: FDA-Public Use
  Company Number: US-ROCHE-1098720

PATIENT
  Sex: Male

DRUGS (2)
  1. LIBRIUM [Concomitant]
     Active Substance: CHLORDIAZEPOXIDE HYDROCHLORIDE
     Route: 048
  2. ACTIVASE [Suspect]
     Active Substance: ALTEPLASE
     Indication: ACUTE MYOCARDIAL INFARCTION
     Route: 042

REACTIONS (6)
  - Ventricular extrasystoles [Recovered/Resolved]
  - Accelerated idioventricular rhythm [Recovered/Resolved]
  - Nodal rhythm [Recovered/Resolved]
  - Supraventricular extrasystoles [Recovered/Resolved]
  - Chest pain [Recovered/Resolved]
  - Ventricular tachycardia [Recovered/Resolved]
